FAERS Safety Report 25688633 (Version 7)
Quarter: 2025Q4

REPORT INFORMATION
  Report Type: Spontaneous
  Country: US (occurrence: US)
  Receive Date: 20250818
  Receipt Date: 20251027
  Transmission Date: 20260118
  Serious: No
  Sender: ASTELLAS
  Company Number: US-ASTELLAS-2025-AER-043921

PATIENT
  Age: 71 Year
  Sex: Male
  Weight: 65 kg

DRUGS (5)
  1. PADCEV [Suspect]
     Active Substance: ENFORTUMAB VEDOTIN-EJFV
     Indication: Product used for unknown indication
     Dosage: PADCEV 20 MG AT 1MG/KG
     Route: 042
  2. PADCEV [Suspect]
     Active Substance: ENFORTUMAB VEDOTIN-EJFV
     Dosage: PADCEV 1.02 MG/ KG
     Route: 042
  3. PADCEV [Suspect]
     Active Substance: ENFORTUMAB VEDOTIN-EJFV
     Route: 042
     Dates: start: 20250919
  4. PADCEV [Suspect]
     Active Substance: ENFORTUMAB VEDOTIN-EJFV
     Dosage: (20MG; 1.05 MG/ KG)
     Route: 042
     Dates: start: 20250929
  5. PADCEV [Suspect]
     Active Substance: ENFORTUMAB VEDOTIN-EJFV
     Dosage: DAY 1
     Route: 065
     Dates: start: 20251017

REACTIONS (3)
  - Prescribed underdose [Unknown]
  - Off label use [Unknown]
  - Off label use [Unknown]
